FAERS Safety Report 9856677 (Version 3)
Quarter: 2014Q1

REPORT INFORMATION
  Report Type: Spontaneous
  Country: US (occurrence: US)
  Receive Date: 20140130
  Receipt Date: 20140227
  Transmission Date: 20141002
  Serious: Yes (Hospitalization)
  Sender: FDA-Public Use
  Company Number: US-GLAXOSMITHKLINE-A1057686A

PATIENT
  Age: 67 Year
  Sex: Female

DRUGS (6)
  1. ADVAIR HFA [Suspect]
     Indication: ASTHMA
     Dosage: 1PUFF TWICE PER DAY
     Route: 055
  2. VENTOLIN HFA [Suspect]
     Indication: ASTHMA
     Dosage: 1PUFF AS REQUIRED
     Route: 055
  3. FLUOXETINE [Concomitant]
     Indication: DEPRESSION
     Dosage: 50MG IN THE MORNING
     Route: 065
  4. TRAZODONE [Concomitant]
     Indication: DEPRESSION
  5. MIRTAZAPINE [Concomitant]
  6. BUSPIRONE [Concomitant]
     Indication: ANXIETY

REACTIONS (5)
  - Cardiac arrest [Unknown]
  - Resuscitation [Unknown]
  - Myocardial infarction [Unknown]
  - Supraventricular tachycardia [Unknown]
  - Dyspnoea [Unknown]
